FAERS Safety Report 11982681 (Version 1)
Quarter: 2016Q1

REPORT INFORMATION
  Report Type: Spontaneous
  Country: US (occurrence: None)
  Receive Date: 20160129
  Receipt Date: 20160129
  Transmission Date: 20160526
  Serious: Yes (Disabling, Other)
  Sender: FDA-Public Use
  Company Number: None

PATIENT
  Age: 66 Year
  Sex: Female
  Weight: 63.5 kg

DRUGS (3)
  1. SPIRONOLACTONE. [Concomitant]
     Active Substance: SPIRONOLACTONE
  2. NATTOKINASE [Concomitant]
     Active Substance: NATTOKINASE
  3. ESCITALOPRAM [Suspect]
     Active Substance: ESCITALOPRAM OXALATE
     Indication: ANXIETY
     Dosage: TAKEN BY MOUTH
     Dates: start: 20130715, end: 20150827

REACTIONS (26)
  - Agitation [None]
  - Depression [None]
  - Flatulence [None]
  - Abdominal discomfort [None]
  - Hallucination, auditory [None]
  - Abdominal distension [None]
  - Feeling abnormal [None]
  - Eructation [None]
  - Drug withdrawal syndrome [None]
  - Pruritus [None]
  - Discomfort [None]
  - Hypoaesthesia [None]
  - Somnolence [None]
  - Hyperhidrosis [None]
  - Pain [None]
  - Anal incontinence [None]
  - Lethargy [None]
  - Paraesthesia [None]
  - Emotional disorder [None]
  - Gastrointestinal motility disorder [None]
  - Defaecation urgency [None]
  - Nervousness [None]
  - Tremor [None]
  - Hallucination, visual [None]
  - Overdose [None]
  - Irritability [None]

NARRATIVE: CASE EVENT DATE: 20150829
